FAERS Safety Report 4785758-4 (Version None)
Quarter: 2005Q4

REPORT INFORMATION
  Report Type: 
  Country: None (occurrence: None)
  Receive Date: 20051003
  Receipt Date: 20050920
  Transmission Date: 20060501
  Serious: Yes (Hospitalization)
  Sender: FDA-Public Use
  Company Number: 2005AP04990

PATIENT
  Age: 55 Year
  Sex: Female

DRUGS (20)
  1. OMEPRAZOLE [Suspect]
  2. LOCHOL [Suspect]
     Indication: HYPERLIPIDAEMIA
     Route: 048
     Dates: start: 20030801, end: 20050801
  3. TOFRANIL [Suspect]
     Route: 048
  4. TETRAMIDE [Suspect]
     Route: 048
  5. DEPAS [Suspect]
     Route: 048
  6. DESYREL [Suspect]
     Route: 048
  7. AKINETON [Suspect]
  8. ACECOL [Suspect]
     Route: 048
  9. GOODMIN [Concomitant]
  10. EURODIN [Concomitant]
  11. BROVARIN [Concomitant]
  12. MYSLEE [Concomitant]
  13. PURSENNID [Concomitant]
  14. RHYTHMY [Concomitant]
  15. CONTOMIN [Concomitant]
  16. RHUBARB DRY EXTRACT [Concomitant]
  17. KAMAG G [Concomitant]
  18. PL GRAN [Concomitant]
  19. THIATON [Concomitant]
  20. ANTI-DEPRESSANT DRUGS [Concomitant]

REACTIONS (12)
  - ALANINE AMINOTRANSFERASE INCREASED [None]
  - ASPARTATE AMINOTRANSFERASE INCREASED [None]
  - BLOOD ALKALINE PHOSPHATASE INCREASED [None]
  - BLOOD CREATINE PHOSPHOKINASE INCREASED [None]
  - BLOOD CREATININE INCREASED [None]
  - BLOOD GLUCOSE INCREASED [None]
  - BLOOD LACTATE DEHYDROGENASE INCREASED [None]
  - BLOOD UREA INCREASED [None]
  - GLUCOSE URINE [None]
  - HAEMODIALYSIS [None]
  - PROTEIN URINE PRESENT [None]
  - RHABDOMYOLYSIS [None]
